FAERS Safety Report 7451432-9 (Version None)
Quarter: 2011Q2

REPORT INFORMATION
  Report Type: 
  Country: None (occurrence: None)
  Receive Date: 20110422
  Receipt Date: 20110414
  Transmission Date: 20111010
  Serious: Yes (Hospitalization)
  Sender: FDA-Public Use
  Company Number: 11-000419

PATIENT
  Age: 53 Year
  Sex: Female
  Weight: 61.2 kg

DRUGS (5)
  1. VITAMIN TAB [Concomitant]
  2. CALCIUM (CALCIUM) [Concomitant]
  3. SUDAFED 12 HOUR (PSEUDOEPHEDRINE HYDROCHLORIDE) [Concomitant]
  4. FEMRING [Suspect]
     Indication: VULVOVAGINAL DRYNESS
     Dosage: 0.05 MG, QD, VAGINAL
     Route: 067
     Dates: start: 20091001
  5. ZYRTEC [Concomitant]

REACTIONS (2)
  - LUNG CARCINOMA CELL TYPE UNSPECIFIED STAGE III [None]
  - DEEP VEIN THROMBOSIS [None]
